FAERS Safety Report 8621928-2 (Version None)
Quarter: 2012Q3

REPORT INFORMATION
  Report Type: 
  Country: None (occurrence: None)
  Receive Date: 20120822
  Receipt Date: 20120822
  Transmission Date: 20120928
  Serious: Yes (Other)
  Sender: FDA-Public Use
  Company Number: None

PATIENT
  Sex: Male
  Weight: 78.0187 kg

DRUGS (1)
  1. RIBASPHERE [Suspect]
     Indication: HEPATITIS C
     Dosage: 3 AM + 3 PM
     Route: 048
     Dates: start: 20120625

REACTIONS (1)
  - RED BLOOD CELL COUNT DECREASED [None]
